FAERS Safety Report 4567209-8 (Version None)
Quarter: 2005Q1

REPORT INFORMATION
  Report Type: 
  Country: None (occurrence: None)
  Receive Date: 20050201
  Receipt Date: 20050125
  Transmission Date: 20050727
  Serious: Yes (Other)
  Sender: FDA-Public Use
  Company Number: JP-GLAXOSMITHKLINE-B0366016A

PATIENT
  Age: 68 Year
  Sex: Male

DRUGS (5)
  1. ZOVIRAX [Suspect]
     Indication: HERPES ZOSTER
     Dosage: 300MG THREE TIMES PER DAY
     Route: 042
     Dates: start: 20041111, end: 20041113
  2. VICCILLIN [Concomitant]
     Route: 065
     Dates: start: 20041111, end: 20041112
  3. DALACIN [Concomitant]
     Dosage: 200MG THREE TIMES PER DAY
     Route: 065
     Dates: start: 20041113, end: 20041115
  4. FERROMIA [Concomitant]
     Dosage: 1TAB TWICE PER DAY
     Route: 048
  5. ACETAMINOPHEN [Concomitant]
     Dosage: 2TAB THREE TIMES PER DAY
     Route: 048

REACTIONS (2)
  - ALOPECIA [None]
  - PANCYTOPENIA [None]
